FAERS Safety Report 8639601 (Version 5)
Quarter: 2013Q1

REPORT INFORMATION
  Report Type: Report from Study
  Country: JP (occurrence: JP)
  Receive Date: 20120627
  Receipt Date: 20130219
  Transmission Date: 20140127
  Serious: Yes (Other)
  Sender: FDA-Public Use
  Company Number: JP-ROCHE-1080838

PATIENT
  Age: 63 Year
  Sex: Female
  Weight: 45.8 kg

DRUGS (6)
  1. ADO-TRASTUZUMAB EMTANSINE [Suspect]
     Indication: BREAST CANCER
     Dosage: LAST DOSE OF TRASTUZUMAB EMTANSINE 166 MG ON 24/MAY/2012
     Route: 042
     Dates: start: 20120119, end: 20120524
  2. PROTECADIN [Concomitant]
     Indication: GASTRITIS EROSIVE
     Route: 065
     Dates: start: 201105
  3. CALONAL [Concomitant]
     Indication: HEADACHE
     Route: 065
     Dates: start: 20120301, end: 20120524
  4. REBAMIPIDE [Concomitant]
     Indication: GASTRITIS EROSIVE
     Route: 065
     Dates: start: 20120414
  5. LAC-B [Concomitant]
     Indication: DIARRHOEA
     Route: 065
     Dates: start: 20120524, end: 20120526
  6. PERTUZUMAB [Suspect]
     Indication: BREAST CANCER
     Dosage: LAST DOSE OF PERTUZUMAB ON 24/MAY/2012
     Route: 042
     Dates: start: 20120119, end: 20120524

REACTIONS (1)
  - Interstitial lung disease [Not Recovered/Not Resolved]
